FAERS Safety Report 6177298-5 (Version None)
Quarter: 2009Q2

REPORT INFORMATION
  Report Type: 
  Country: None (occurrence: None)
  Receive Date: 20090430
  Receipt Date: 20090430
  Transmission Date: 20091009
  Serious: Yes (Other)
  Sender: FDA-Public Use
  Company Number: None

PATIENT
  Age: 53 Year
  Sex: Female
  Weight: 61.2356 kg

DRUGS (2)
  1. VISINE-A [Suspect]
     Indication: EYE PAIN
     Dosage: 1-2 DROPS 4X/DAY OPHTHALMIC
     Route: 047
     Dates: start: 20090225, end: 20090429
  2. VISINE-A [Suspect]
     Indication: OCULAR HYPERAEMIA
     Dosage: 1-2 DROPS 4X/DAY OPHTHALMIC
     Route: 047
     Dates: start: 20090225, end: 20090429

REACTIONS (2)
  - MYDRIASIS [None]
  - VISION BLURRED [None]
